FAERS Safety Report 21933834 (Version 1)
Quarter: 2023Q1

REPORT INFORMATION
  Report Type: Spontaneous
  Country: US (occurrence: US)
  Receive Date: 20230201
  Receipt Date: 20230201
  Transmission Date: 20230418
  Serious: No
  Sender: FDA-Public Use
  Company Number: US-SANOFI-01139444

PATIENT
  Age: 92 Year
  Sex: Female

DRUGS (1)
  1. DUPIXENT [Suspect]
     Active Substance: DUPILUMAB
     Indication: Pemphigoid
     Dosage: 2 ML, QOW,DRUG TREATMENT DURATION:SINCE LATE SUMMER OR EARLY FALL

REACTIONS (2)
  - Drug effective for unapproved indication [Unknown]
  - Accidental exposure to product [Unknown]
